FAERS Safety Report 5937459-4 (Version None)
Quarter: 2008Q4

REPORT INFORMATION
  Report Type: 
  Country: None (occurrence: None)
  Receive Date: 20081031
  Receipt Date: 20081023
  Transmission Date: 20090506
  Serious: Yes (Hospitalization)
  Sender: FDA-Public Use
  Company Number: B0539950A

PATIENT
  Age: 92 Year
  Sex: Male

DRUGS (11)
  1. ZOVIRAX [Suspect]
     Indication: HERPES ZOSTER
     Dosage: 250MG PER DAY
     Route: 042
     Dates: start: 20080924, end: 20080926
  2. VALTREX [Suspect]
     Indication: HERPES ZOSTER
     Route: 048
     Dates: start: 20080924, end: 20080924
  3. VALTREX [Suspect]
     Dosage: 1000MG THREE TIMES PER DAY
     Route: 048
     Dates: start: 20080925, end: 20080926
  4. PANALDINE [Concomitant]
     Route: 048
  5. EPADEL [Concomitant]
     Dosage: 600MG PER DAY
     Route: 048
  6. PRORENAL [Concomitant]
     Dosage: 30MCG PER DAY
     Route: 048
  7. TANATRIL [Concomitant]
     Route: 048
  8. ASPIRIN [Concomitant]
     Route: 048
  9. ARTIST [Concomitant]
     Route: 048
  10. ALOSITOL [Concomitant]
     Route: 048
  11. DIOVAN [Concomitant]
     Dosage: 80MG PER DAY
     Route: 048

REACTIONS (6)
  - ALTERED STATE OF CONSCIOUSNESS [None]
  - BLOOD CREATININE INCREASED [None]
  - CARDIAC FAILURE [None]
  - COMA [None]
  - OVERDOSE [None]
  - RENAL IMPAIRMENT [None]
